FAERS Safety Report 16641813 (Version 1)
Quarter: 2019Q3

REPORT INFORMATION
  Report Type: Report from Study
  Country: None (occurrence: RO)
  Receive Date: 20190729
  Receipt Date: 20190729
  Transmission Date: 20191004
  Serious: Yes (Other)
  Sender: FDA-Public Use
  Company Number: RO-ABBVIE-19K-135-2814664-00

PATIENT
  Age: 64 Year
  Sex: Female

DRUGS (7)
  1. TAROSIN [Concomitant]
     Indication: CARDIOVASCULAR DISORDER
     Route: 048
     Dates: start: 201902
  2. DETRALEX [Concomitant]
     Active Substance: DIOSMIN\HESPERIDIN
     Indication: CARDIOVASCULAR DISORDER
     Route: 048
  3. SILYMARIN [Concomitant]
     Active Substance: DIETARY SUPPLEMENT\HERBALS\MILK THISTLE
     Indication: HEPATITIS C
     Route: 048
  4. ATACAND [Concomitant]
     Active Substance: CANDESARTAN CILEXETIL
     Indication: CARDIAC DISORDER
     Route: 048
  5. PREDUCTAL [Concomitant]
     Active Substance: TRIMETAZIDINE DIHYDROCHLORIDE
     Indication: CARDIAC DISORDER
     Route: 048
  6. BETALOC ZOK [Concomitant]
     Active Substance: METOPROLOL SUCCINATE
     Indication: CARDIAC DISORDER
     Route: 048
  7. HUMIRA [Suspect]
     Active Substance: ADALIMUMAB
     Indication: RHEUMATOID ARTHRITIS
     Route: 058
     Dates: start: 20190314, end: 20190706

REACTIONS (12)
  - Tongue blistering [Recovered/Resolved]
  - Myalgia [Recovered/Resolved]
  - Headache [Recovered/Resolved]
  - Myalgia [Recovered/Resolved]
  - Cardiovascular disorder [Not Recovered/Not Resolved]
  - Vomiting [Recovered/Resolved]
  - Vomiting [Recovered/Resolved]
  - Headache [Recovered/Resolved]
  - Tongue blistering [Recovered/Resolved]
  - Swelling [Recovered/Resolved]
  - Vascular rupture [Not Recovered/Not Resolved]
  - Swelling [Recovered/Resolved]

NARRATIVE: CASE EVENT DATE: 2019
